FAERS Safety Report 22318405 (Version 1)
Quarter: 2023Q2

REPORT INFORMATION
  Report Type: Spontaneous
  Country: US (occurrence: US)
  Receive Date: 20230515
  Receipt Date: 20230515
  Transmission Date: 20230722
  Serious: Yes (Other)
  Sender: FDA-Public Use
  Company Number: US-SA-SAC20230512000074

PATIENT
  Sex: Female

DRUGS (14)
  1. DUPIXENT [Suspect]
     Active Substance: DUPILUMAB
     Indication: Dermatitis allergic
     Dosage: 300 MG, QOW
     Route: 058
  2. ATORVASTATIN [Concomitant]
     Active Substance: ATORVASTATIN
     Dosage: UNK
  3. BUMETANIDE [Concomitant]
     Active Substance: BUMETANIDE
  4. CREON [Concomitant]
     Active Substance: PANCRELIPASE AMYLASE\PANCRELIPASE LIPASE\PANCRELIPASE PROTEASE
  5. ELIQUIS [Concomitant]
     Active Substance: APIXABAN
  6. ESCITALOPRAM [Concomitant]
     Active Substance: ESCITALOPRAM OXALATE
  7. LAMOTRIGINE [Concomitant]
     Active Substance: LAMOTRIGINE
  8. LEVEMIR [Concomitant]
     Active Substance: INSULIN DETEMIR
  9. MONTELUKAST [Concomitant]
     Active Substance: MONTELUKAST SODIUM
  10. POTASSIUM [Concomitant]
     Active Substance: POTASSIUM
  11. PREDNISONE [Concomitant]
     Active Substance: PREDNISONE
  12. PREGABALIN [Concomitant]
     Active Substance: PREGABALIN
  13. RESTASIS [Concomitant]
     Active Substance: CYCLOSPORINE
     Dosage: 1MG
  14. ACETAZOLAMIDE [Concomitant]
     Active Substance: ACETAZOLAMIDE

REACTIONS (8)
  - Pancreatitis [Unknown]
  - Fatigue [Unknown]
  - Pyrexia [Unknown]
  - Hand fracture [Unknown]
  - Tremor [Unknown]
  - Depression [Unknown]
  - Psychiatric symptom [Unknown]
  - Oropharyngeal pain [Unknown]

NARRATIVE: CASE EVENT DATE: 20230401
